FAERS Safety Report 8424118-1 (Version None)
Quarter: 2012Q2

REPORT INFORMATION
  Report Type: 
  Country: None (occurrence: None)
  Receive Date: 20120608
  Receipt Date: 20110524
  Transmission Date: 20120825
  Serious: No
  Sender: FDA-Public Use
  Company Number: US-ASTRAZENECA-2011SE31726

PATIENT
  Age: 46 Year
  Sex: Female

DRUGS (1)
  1. PULMICORT [Suspect]
     Indication: SINUS DISORDER
     Route: 055

REACTIONS (3)
  - WRONG TECHNIQUE IN DRUG USAGE PROCESS [None]
  - FUNGAL RHINITIS [None]
  - OFF LABEL USE [None]
